FAERS Safety Report 7021631-9 (Version None)
Quarter: 2010Q3

REPORT INFORMATION
  Report Type: 
  Country: None (occurrence: None)
  Receive Date: 20100929
  Receipt Date: 20100929
  Transmission Date: 20110219
  Serious: Yes (Death, Hospitalization, Disabling)
  Sender: FDA-Public Use
  Company Number: PHHO2010IT10243

PATIENT
  Sex: Male
  Weight: 160 kg

DRUGS (2)
  1. TASIGNA [Suspect]
     Indication: CHRONIC MYELOID LEUKAEMIA
     Dosage: UNK
     Route: 048
     Dates: start: 20100409
  2. VINCRISTINE [Concomitant]

REACTIONS (12)
  - ACUTE PULMONARY OEDEMA [None]
  - ALCOHOL POISONING [None]
  - CONFUSIONAL STATE [None]
  - DISORIENTATION [None]
  - HYPOREFLEXIA [None]
  - METASTASES TO MENINGES [None]
  - MOTOR DYSFUNCTION [None]
  - MUSCULAR WEAKNESS [None]
  - NEUROPATHY PERIPHERAL [None]
  - PARAESTHESIA [None]
  - PARAPLEGIA [None]
  - PNEUMONIA FUNGAL [None]
